FAERS Safety Report 5166202-4 (Version None)
Quarter: 2006Q4

REPORT INFORMATION
  Report Type: 
  Country: None (occurrence: None)
  Receive Date: 20060830
  Receipt Date: 20060603
  Transmission Date: 20070319
  Serious: No
  Sender: FDA-Public Use
  Company Number: 224151

PATIENT
  Sex: Female

DRUGS (1)
  1. XOLAIR [Suspect]
     Indication: DRUG USE FOR UNKNOWN INDICATION
     Dosage: 375 MG , 2/ MONTH, SUBCUTANEOUS
     Route: 058
     Dates: start: 20050201, end: 20060317

REACTIONS (2)
  - PAIN IN EXTREMITY [None]
  - RASH [None]
